FAERS Safety Report 18972299 (Version 1)
Quarter: 2021Q1

REPORT INFORMATION
  Report Type: Spontaneous
  Country: US (occurrence: US)
  Receive Date: 20210305
  Receipt Date: 20210305
  Transmission Date: 20210420
  Serious: Yes (Other)
  Sender: FDA-Public Use
  Company Number: US-STRIDES ARCOLAB LIMITED-2021SP001275

PATIENT
  Sex: Female

DRUGS (47)
  1. PREDNISOLONE. [Suspect]
     Active Substance: PREDNISOLONE
     Dosage: UNK
     Route: 065
     Dates: start: 2011, end: 2015
  2. PREDNISOLONE. [Suspect]
     Active Substance: PREDNISOLONE
     Dosage: 40 MILLIGRAM, QD 3?5 DAYS
     Route: 065
     Dates: start: 2016, end: 2018
  3. SALMETEROL AND FLUTICASONE [Suspect]
     Active Substance: FLUTICASONE PROPIONATE\SALMETEROL XINAFOATE
     Dosage: 500/50 ONE  PUFF, BID
     Route: 065
     Dates: start: 2011, end: 2015
  4. PREDNISOLONE. [Suspect]
     Active Substance: PREDNISOLONE
     Dosage: 50 MILLIGRAM, QD
     Route: 065
     Dates: start: 2006, end: 2010
  5. PREDNISOLONE. [Suspect]
     Active Substance: PREDNISOLONE
     Dosage: 20 MILLIGRAM, BID
     Route: 065
     Dates: start: 2006, end: 2010
  6. PREDNISOLONE. [Suspect]
     Active Substance: PREDNISOLONE
     Dosage: 10 MILLIGRAM, QD
     Route: 065
     Dates: start: 2006, end: 2010
  7. PREDNISOLONE. [Suspect]
     Active Substance: PREDNISOLONE
     Dosage: UNK, PREDNISOLONE AT HAND
     Route: 065
     Dates: start: 2011, end: 2015
  8. PREDNISOLONE. [Suspect]
     Active Substance: PREDNISOLONE
     Dosage: 40 MILLIGRAM
     Route: 065
     Dates: start: 2011, end: 2015
  9. PREDNISOLONE. [Suspect]
     Active Substance: PREDNISOLONE
     Dosage: 20 MILLIGRAM
     Route: 065
     Dates: start: 2011, end: 2015
  10. PREDNISOLONE. [Suspect]
     Active Substance: PREDNISOLONE
     Dosage: 20 MILLIGRAM
     Route: 065
     Dates: start: 2011, end: 2015
  11. PREDNISOLONE. [Suspect]
     Active Substance: PREDNISOLONE
     Dosage: 60 MILLIGRAM
     Route: 065
     Dates: start: 2011, end: 2015
  12. HYDROCORTISONE. [Suspect]
     Active Substance: HYDROCORTISONE
     Indication: PRODUCT USED FOR UNKNOWN INDICATION
     Dosage: UNK, EAR DROPS
     Route: 065
     Dates: start: 2001, end: 2005
  13. TRIAMCINOLONE ACETONIDE. [Suspect]
     Active Substance: TRIAMCINOLONE ACETONIDE
     Dosage: 55 MICROGRAM, QD /ACTUATION 1 2 SPRAYS EACH NOSTRIL
     Route: 045
     Dates: start: 2001, end: 2005
  14. BUDESONIDE;FORMOTEROL [Suspect]
     Active Substance: BUDESONIDE\FORMOTEROL
     Indication: PRODUCT USED FOR UNKNOWN INDICATION
     Dosage: 80/4.5 TWO PUFFS, BID
     Route: 065
     Dates: start: 2006, end: 2010
  15. BETAMETHASONE;CLOTRIMAZOLE [Suspect]
     Active Substance: BETAMETHASONE\CLOTRIMAZOLE
     Indication: PRODUCT USED FOR UNKNOWN INDICATION
     Dosage: 1?0.05  PERCENT, BID
     Route: 065
     Dates: start: 2016, end: 2018
  16. METHYLPREDNISOLONE. [Suspect]
     Active Substance: METHYLPREDNISOLONE
     Indication: PRODUCT USED FOR UNKNOWN INDICATION
     Dosage: 40 MILLIGRAM
     Route: 065
     Dates: start: 2001, end: 2005
  17. METHYLPREDNISOLONE. [Suspect]
     Active Substance: METHYLPREDNISOLONE
     Dosage: 60MG X 1, 40MG X1
     Route: 065
     Dates: start: 2006, end: 2010
  18. METHYLPREDNISOLONE. [Suspect]
     Active Substance: METHYLPREDNISOLONE
     Dosage: 100MG X 1
     Route: 065
     Dates: start: 2011, end: 2015
  19. SALMETEROL AND FLUTICASONE [Suspect]
     Active Substance: FLUTICASONE PROPIONATE\SALMETEROL XINAFOATE
     Indication: PRODUCT USED FOR UNKNOWN INDICATION
     Dosage: 250/50 ONE PUFF, BID
     Route: 065
     Dates: start: 2006, end: 2010
  20. FLUTICASONE PROPIONATE. [Suspect]
     Active Substance: FLUTICASONE PROPIONATE
     Indication: PRODUCT USED FOR UNKNOWN INDICATION
     Dosage: 220 MICROGRAM TWO PUFFS, BID
     Route: 065
     Dates: start: 2016, end: 2018
  21. FLUTICASONE PROPIONATE. [Suspect]
     Active Substance: FLUTICASONE PROPIONATE
     Dosage: 220 MICROGRAM TWO SPRAY EACH NOSTRIL, BID
     Route: 065
  22. PREDNISOLONE. [Suspect]
     Active Substance: PREDNISOLONE
     Indication: PRODUCT USED FOR UNKNOWN INDICATION
     Dosage: 20 MILLIGRAM, TID
     Route: 065
     Dates: start: 2001, end: 2005
  23. PREDNISOLONE. [Suspect]
     Active Substance: PREDNISOLONE
     Dosage: 10 MILLIGRAM
     Route: 065
     Dates: start: 2011, end: 2015
  24. PREDNISOLONE. [Suspect]
     Active Substance: PREDNISOLONE
     Dosage: 40 MILLIGRAM
     Route: 065
     Dates: start: 2011, end: 2015
  25. PREDNISOLONE. [Suspect]
     Active Substance: PREDNISOLONE
     Dosage: THREE COURSES IN A YEAR (2017), UP TO 80MG DAILY MAX DOSE (THE FIRST TWO COURSES TAPERED DOWN WITHIN
     Route: 065
     Dates: start: 2017, end: 2018
  26. HYDROCORTISONE. [Suspect]
     Active Substance: HYDROCORTISONE
     Dosage: UNK, ONE COURSE EAR DROPS
     Route: 065
     Dates: start: 2011, end: 2015
  27. FORMOTEROL;MOMETASONE [Suspect]
     Active Substance: FORMOTEROL\MOMETASONE
     Indication: PRODUCT USED FOR UNKNOWN INDICATION
     Dosage: 200 MCG/5 MCG TWO PUFFS, BID
     Route: 065
     Dates: start: 2011, end: 2015
  28. FORMOTEROL;MOMETASONE [Suspect]
     Active Substance: FORMOTEROL\MOMETASONE
     Dosage: 200 /5 (UNITS UNKNOWN) TWO PUFFS, BID
     Route: 065
     Dates: start: 2016, end: 2018
  29. PREDNISOLONE. [Suspect]
     Active Substance: PREDNISOLONE
     Dosage: 40 MILLIGRAM, QD 3?5 DAYS
     Route: 065
     Dates: start: 2011, end: 2015
  30. PREDNISOLONE. [Suspect]
     Active Substance: PREDNISOLONE
     Dosage: 40 MILLIGRAM
     Route: 065
     Dates: start: 2011, end: 2015
  31. PREDNISOLONE. [Suspect]
     Active Substance: PREDNISOLONE
     Dosage: 20 MILLIGRAM
     Route: 065
     Dates: start: 2011, end: 2015
  32. HYDROCORTISONE. [Suspect]
     Active Substance: HYDROCORTISONE
     Dosage: UNK, LOW DOSE
     Route: 065
  33. TRIAMCINOLONE ACETONIDE. [Suspect]
     Active Substance: TRIAMCINOLONE ACETONIDE
     Indication: PRODUCT USED FOR UNKNOWN INDICATION
     Dosage: 75 MICROGRAM, QD  3 PUFFS
     Route: 065
     Dates: start: 2001, end: 2005
  34. METHYLPREDNISOLONE. [Suspect]
     Active Substance: METHYLPREDNISOLONE
     Dosage: 20 MILLIGRAM
     Route: 065
     Dates: start: 2011, end: 2015
  35. PREDNISOLONE. [Suspect]
     Active Substance: PREDNISOLONE
     Dosage: 15 MILLIGRAM
     Route: 065
     Dates: start: 2006, end: 2010
  36. PREDNISOLONE. [Suspect]
     Active Substance: PREDNISOLONE
     Dosage: 20 MILLIGRAM, QD
     Route: 065
     Dates: start: 2006, end: 2010
  37. PREDNISOLONE. [Suspect]
     Active Substance: PREDNISOLONE
     Dosage: 40 MILLIGRAM, OCCASIONAL DOSES
     Route: 065
     Dates: start: 2011, end: 2015
  38. SALMETEROL AND FLUTICASONE [Suspect]
     Active Substance: FLUTICASONE PROPIONATE\SALMETEROL XINAFOATE
     Dosage: 250/50 ONE PUFF, BID
     Route: 065
     Dates: start: 2011, end: 2015
  39. PREDNISOLONE. [Suspect]
     Active Substance: PREDNISOLONE
     Dosage: 20 MILLIGRAM, BID
     Route: 065
     Dates: start: 2011, end: 2015
  40. PREDNISOLONE. [Suspect]
     Active Substance: PREDNISOLONE
     Dosage: 20 MILLIGRAM, QD
     Route: 065
     Dates: start: 2011, end: 2015
  41. PREDNISOLONE. [Suspect]
     Active Substance: PREDNISOLONE
     Dosage: UNK, PREDNISOLONE 1TAB TWICE DAILY FOR 3?5 DAYS
     Route: 065
     Dates: start: 2011, end: 2015
  42. PREDNISOLONE. [Suspect]
     Active Substance: PREDNISOLONE
     Dosage: 40 MILLIGRAM, QD UNKNOWN DURATION
     Route: 065
     Dates: start: 2016, end: 2018
  43. HYDROCORTISONE. [Suspect]
     Active Substance: HYDROCORTISONE
     Dosage: UNK, TAPERED DOWN AFTER 2 MONTHS OF THERAPY
     Route: 065
  44. METHYLPREDNISOLONE. [Suspect]
     Active Substance: METHYLPREDNISOLONE
     Dosage: 40MG X 4
     Route: 065
     Dates: start: 2011, end: 2015
  45. SALMETEROL AND FLUTICASONE [Suspect]
     Active Substance: FLUTICASONE PROPIONATE\SALMETEROL XINAFOATE
     Dosage: 230/21 TWO PUFF, BID
     Route: 065
     Dates: start: 2011, end: 2015
  46. PREDNISOLONE. [Suspect]
     Active Substance: PREDNISOLONE
     Dosage: 60 MILLIGRAM, QD
     Route: 065
     Dates: start: 2011, end: 2015
  47. TRIAMCINOLONE ACETONIDE. [Suspect]
     Active Substance: TRIAMCINOLONE ACETONIDE
     Dosage: 0.1 PERCENT, BID, EAR DROP AS REQUIRED
     Route: 065
     Dates: start: 2011, end: 2015

REACTIONS (2)
  - Adrenal insufficiency [Not Recovered/Not Resolved]
  - Hypothalamic pituitary adrenal axis suppression [Unknown]

NARRATIVE: CASE EVENT DATE: 2001
